FAERS Safety Report 25939600 (Version 1)
Quarter: 2025Q4

REPORT INFORMATION
  Report Type: Other
  Country: CA (occurrence: CA)
  Receive Date: 20251020
  Receipt Date: 20251020
  Transmission Date: 20260118
  Serious: Yes (Other)
  Sender: GLENMARK
  Company Number: CA-GLENMARK PHARMACEUTICALS-2025GMK104781

PATIENT
  Age: 77 Year
  Sex: Female

DRUGS (5)
  1. TOPIRAMATE [Suspect]
     Active Substance: TOPIRAMATE
     Indication: Chronic tic disorder
     Dosage: 25 MILLIGRAM  2 EVERY 1 DAYS
     Route: 065
  2. ARIPIPRAZOLE [Concomitant]
     Active Substance: ARIPIPRAZOLE
     Indication: Chronic tic disorder
     Dosage: 2 MILLIGRAM
     Route: 065
  3. GUANFACINE [Concomitant]
     Active Substance: GUANFACINE
     Indication: Chronic tic disorder
     Dosage: UNK
     Route: 065
  4. LEVODOPA [Concomitant]
     Active Substance: LEVODOPA
     Indication: Parkinson^s disease
     Dosage: 600 MILLIGRAM  1 EVERY 1 DAYS
     Route: 065
  5. PRAMIPEXOLE [Concomitant]
     Active Substance: PRAMIPEXOLE
     Indication: Parkinson^s disease
     Dosage: 2.75 MILLIGRAM 1 EVERY 1 DAYS
     Route: 065

REACTIONS (2)
  - Cognitive disorder [Unknown]
  - Off label use [Unknown]
